FAERS Safety Report 17172929 (Version 2)
Quarter: 2020Q1

REPORT INFORMATION
  Report Type: Spontaneous
  Country: HU (occurrence: HU)
  Receive Date: 20191218
  Receipt Date: 20200218
  Transmission Date: 20200409
  Serious: Yes (Other)
  Sender: FDA-Public Use
  Company Number: HU-GALDERMA-HU19073976

PATIENT
  Age: 59 Year
  Sex: Male

DRUGS (11)
  1. DICLOFENAC [Concomitant]
     Active Substance: DICLOFENAC
     Indication: PRODUCT USED FOR UNKNOWN INDICATION
     Route: 065
     Dates: start: 20181019
  2. AMOXICILLIN. [Concomitant]
     Active Substance: AMOXICILLIN
     Indication: PRODUCT USED FOR UNKNOWN INDICATION
     Route: 065
  3. TRAMETINIB [Concomitant]
     Active Substance: TRAMETINIB
     Route: 065
     Dates: start: 20190729
  4. TRAMETINIB [Concomitant]
     Active Substance: TRAMETINIB
     Indication: PRODUCT USED FOR UNKNOWN INDICATION
     Route: 065
     Dates: start: 20190313
  5. CEFTRIAXON [Concomitant]
     Active Substance: CEFTRIAXONE
     Indication: PRODUCT USED FOR UNKNOWN INDICATION
     Route: 065
  6. TAFINLAR [Concomitant]
     Active Substance: DABRAFENIB MESYLATE
     Indication: PRODUCT USED FOR UNKNOWN INDICATION
     Dosage: 2 DF, QD
     Route: 065
     Dates: end: 20190716
  7. METRONIDAZOLE. [Suspect]
     Active Substance: METRONIDAZOLE
     Indication: PRODUCT USED FOR UNKNOWN INDICATION
     Route: 065
     Dates: start: 20190703
  8. DABRAFENIB [Concomitant]
     Active Substance: DABRAFENIB
     Dosage: 2 DF, QD
     Route: 065
     Dates: start: 20190729
  9. DABRAFENIB [Concomitant]
     Active Substance: DABRAFENIB
     Indication: PRODUCT USED FOR UNKNOWN INDICATION
     Route: 065
     Dates: start: 20190313
  10. MEKINIST [Concomitant]
     Active Substance: TRAMETINIB DIMETHYL SULFOXIDE
     Indication: PRODUCT USED FOR UNKNOWN INDICATION
     Dosage: 1 DF, QD
     Route: 065
     Dates: end: 20190716
  11. AMOXICILLIN. [Concomitant]
     Active Substance: AMOXICILLIN
     Dosage: UNK

REACTIONS (17)
  - Oedema [Recovered/Resolved]
  - Hyperreflexia [Recovered/Resolved]
  - C-reactive protein increased [Unknown]
  - Jejunal ulcer perforation [Recovered/Resolved]
  - Blood prolactin increased [Unknown]
  - Pyrexia [Recovered/Resolved]
  - Blood lactate dehydrogenase increased [Unknown]
  - Renal cyst [Unknown]
  - Gastrointestinal disorder [Recovered/Resolved]
  - Weight decreased [Unknown]
  - Paraesthesia [Recovered/Resolved]
  - Abdominal lymphadenopathy [Recovered/Resolved]
  - Abdominal pain [Recovered/Resolved]
  - Vomiting [Recovered/Resolved]
  - Gastrointestinal inflammation [Recovered/Resolved]
  - Dyspepsia [Recovered/Resolved]
  - Malaise [Recovered/Resolved]

NARRATIVE: CASE EVENT DATE: 20190703
